FAERS Safety Report 18580035 (Version 1)
Quarter: 2020Q4

REPORT INFORMATION
  Report Type: Report from Study
  Country: CA (occurrence: CA)
  Receive Date: 20201204
  Receipt Date: 20201204
  Transmission Date: 20210114
  Serious: Yes (Other)
  Sender: FDA-Public Use
  Company Number: CA-JNJFOC-20201145476

PATIENT
  Age: 42 Year
  Sex: Male
  Weight: 77.18 kg

DRUGS (2)
  1. REMICADE [Suspect]
     Active Substance: INFLIXIMAB
     Indication: CROHN^S DISEASE
     Route: 042
     Dates: start: 20201014
  2. VANCOMYCIN [Concomitant]
     Active Substance: VANCOMYCIN
     Indication: PRODUCT USED FOR UNKNOWN INDICATION
     Route: 065
     Dates: start: 202011

REACTIONS (12)
  - Dizziness [Recovered/Resolved]
  - Erythema [Recovering/Resolving]
  - Chills [Recovered/Resolved]
  - Infusion related reaction [Recovering/Resolving]
  - Hyperhidrosis [Recovering/Resolving]
  - Rash [Recovering/Resolving]
  - Head injury [Recovering/Resolving]
  - Joint injury [Recovering/Resolving]
  - Antibiotic therapy [Unknown]
  - Depressed level of consciousness [Recovering/Resolving]
  - Fall [Unknown]
  - Blood pressure decreased [Recovering/Resolving]

NARRATIVE: CASE EVENT DATE: 202011
